FAERS Safety Report 7266807-0 (Version None)
Quarter: 2011Q1

REPORT INFORMATION
  Report Type: 
  Country: None (occurrence: None)
  Receive Date: 20110201
  Receipt Date: 20110119
  Transmission Date: 20110831
  Serious: Yes (Life-Threatening, Hospitalization)
  Sender: FDA-Public Use
  Company Number: US-ALLERGAN-1001761US

PATIENT
  Age: 19 Year
  Sex: Male

DRUGS (11)
  1. BOTOXA? [Suspect]
     Dosage: Q 4 MONTHS IN 2007
     Route: 030
     Dates: start: 20070101, end: 20070101
  2. SINEMET [Concomitant]
     Indication: MUSCLE SPASTICITY
     Dosage: UNK
     Dates: end: 20070101
  3. BOTOXA? [Suspect]
     Dosage: 200 UNITS, SINGLE
     Route: 030
     Dates: start: 20041014, end: 20041014
  4. PREVACID [Concomitant]
     Indication: GASTROOESOPHAGEAL REFLUX DISEASE
     Dosage: UNK
     Dates: start: 20031201
  5. ANTIBIOTICS [Concomitant]
  6. BOTOXA? [Suspect]
     Indication: MUSCLE SPASTICITY
     Dosage: 200 UNITS, SINGLE
     Route: 030
     Dates: start: 20040625, end: 20040625
  7. BOTOXA? [Suspect]
     Dosage: 255 UNITS, UNK
     Dates: start: 20050223, end: 20050223
  8. BOTOXA? [Suspect]
     Dosage: 23FEB2005
     Dates: start: 20050223, end: 20050223
  9. BACLOFEN [Concomitant]
     Indication: MUSCLE SPASTICITY
  10. MIRALAX [Concomitant]
     Indication: CONSTIPATION
     Dosage: 15 MG, QD
  11. SINEMET [Concomitant]
     Dosage: UNK
     Route: 050
     Dates: start: 20070220

REACTIONS (5)
  - APHASIA [None]
  - PNEUMONIA [None]
  - CACHEXIA [None]
  - APNOEA [None]
  - TRACHEOMALACIA [None]
